FAERS Safety Report 9842391 (Version 1)
Quarter: 2014Q1

REPORT INFORMATION
  Report Type: Spontaneous
  Country: US (occurrence: US)
  Receive Date: 20140124
  Receipt Date: 20140124
  Transmission Date: 20141002
  Serious: No
  Sender: FDA-Public Use
  Company Number: US-GILEAD-2011-0037009

PATIENT
  Sex: Female

DRUGS (4)
  1. RANEXA [Suspect]
     Indication: ANGINA PECTORIS
     Route: 048
  2. IRON [Concomitant]
     Indication: ANAEMIA
  3. LASIX [Concomitant]
  4. CARVEDILOL [Concomitant]

REACTIONS (2)
  - Anaemia [Unknown]
  - Chromaturia [Unknown]
